FAERS Safety Report 19972389 (Version 1)
Quarter: 2021Q4

REPORT INFORMATION
  Report Type: Spontaneous
  Country: US (occurrence: US)
  Receive Date: 20211019
  Receipt Date: 20211019
  Transmission Date: 20220303
  Serious: No
  Sender: FDA-Public Use
  Company Number: US-HORIZON THERAPEUTICS-HZN-2021-001375

PATIENT
  Sex: Female

DRUGS (3)
  1. PROCYSBI [Suspect]
     Active Substance: CYSTEAMINE BITARTRATE
     Indication: Product used for unknown indication
     Dosage: 75 MG, (11 CAPSULES PRESCRIBED, TOOK 10 CAPSULES) BID
     Dates: start: 20150625
  2. NORDITROPIN [Concomitant]
     Active Substance: SOMATROPIN
  3. MYCOPHENOLATE MOFETIL [Concomitant]
     Active Substance: MYCOPHENOLATE MOFETIL

REACTIONS (2)
  - Product administration error [Unknown]
  - Incorrect dose administered [Unknown]
